FAERS Safety Report 21565326 (Version 1)
Quarter: 2022Q4

REPORT INFORMATION
  Report Type: Report from Study
  Country: CA (occurrence: CA)
  Receive Date: 20221108
  Receipt Date: 20221108
  Transmission Date: 20230113
  Serious: Yes (Other)
  Sender: FDA-Public Use
  Company Number: CA-TAKEDA-2022TUS080412

PATIENT
  Age: 70 Year
  Sex: Male

DRUGS (10)
  1. VEDOLIZUMAB [Suspect]
     Active Substance: VEDOLIZUMAB
     Indication: Colitis ulcerative
     Dosage: 300 MILLIGRAM
     Route: 042
     Dates: start: 20150601, end: 20170627
  2. VEDOLIZUMAB [Suspect]
     Active Substance: VEDOLIZUMAB
     Dosage: 300 MILLIGRAM
     Route: 042
     Dates: start: 20191231
  3. VEDOLIZUMAB [Suspect]
     Active Substance: VEDOLIZUMAB
     Dosage: 300 MILLIGRAM, Q4WEEKS
     Route: 042
     Dates: start: 20210511
  4. ATIVAN [Concomitant]
     Active Substance: LORAZEPAM
     Dosage: 0.5 MILLIGRAM
     Route: 048
     Dates: start: 20221010, end: 20221017
  5. KEFLEX [Concomitant]
     Active Substance: CEPHALEXIN
     Dosage: 500 MILLIGRAM
     Dates: start: 20221010, end: 20221017
  6. FLAGYL [Concomitant]
     Active Substance: METRONIDAZOLE\METRONIDAZOLE HYDROCHLORIDE
     Dosage: 500 MILLIGRAM
     Dates: start: 20221010
  7. PERCOCET [Concomitant]
     Active Substance: ACETAMINOPHEN\OXYCODONE HYDROCHLORIDE
     Dosage: UNK
     Dates: start: 20221010
  8. LACTULOSE [Concomitant]
     Active Substance: LACTULOSE
     Dosage: UNK
     Dates: start: 20221010
  9. LOPERAMIDE [Concomitant]
     Active Substance: LOPERAMIDE
     Dosage: 2 MILLIGRAM, BID
  10. CANDESARTAN [Concomitant]
     Active Substance: CANDESARTAN
     Indication: Hypertension
     Dosage: 8 MILLIGRAM

REACTIONS (3)
  - Small intestinal obstruction [Recovered/Resolved]
  - Constipation [Recovered/Resolved]
  - Off label use [Unknown]

NARRATIVE: CASE EVENT DATE: 20210511
